FAERS Safety Report 10633095 (Version 1)
Quarter: 2014Q4

REPORT INFORMATION
  Report Type: Spontaneous
  Country: US (occurrence: US)
  Receive Date: 20141205
  Receipt Date: 20141205
  Transmission Date: 20150529
  Serious: Yes (Other)
  Sender: FDA-Public Use
  Company Number: US-BRISTOL-MYERS SQUIBB COMPANY-21431960

PATIENT
  Age: 72 Year
  Sex: Female
  Weight: 90.25 kg

DRUGS (3)
  1. ENBREL [Suspect]
     Active Substance: ETANERCEPT
  2. HUMIRA [Suspect]
     Active Substance: ADALIMUMAB
  3. ORENCIA [Suspect]
     Active Substance: ABATACEPT

REACTIONS (2)
  - Drug ineffective [Unknown]
  - Infection [Unknown]
